FAERS Safety Report 12615313 (Version 1)
Quarter: 2016Q3

REPORT INFORMATION
  Report Type: Spontaneous
  Country: SE (occurrence: SE)
  Receive Date: 20160802
  Receipt Date: 20160802
  Transmission Date: 20161109
  Serious: Yes (Death, Life-Threatening, Other)
  Sender: FDA-Public Use
  Company Number: SE-ACTAVIS-2016-16709

PATIENT
  Age: 90 Year
  Sex: Female

DRUGS (1)
  1. MORPHINE (UNKNOWN) [Suspect]
     Active Substance: MORPHINE
     Indication: PRODUCT USED FOR UNKNOWN INDICATION
     Dosage: UNK
     Route: 065

REACTIONS (6)
  - Intestinal perforation [Unknown]
  - Multiple organ dysfunction syndrome [Unknown]
  - Faecaloma [Unknown]
  - Intestinal ischaemia [Unknown]
  - Sepsis [Fatal]
  - Abdominal abscess [Unknown]
